FAERS Safety Report 4928152-5 (Version None)
Quarter: 2006Q1

REPORT INFORMATION
  Report Type: 
  Country: None (occurrence: None)
  Receive Date: 20060127
  Receipt Date: 20051207
  Transmission Date: 20060701
  Serious: Yes (Other)
  Sender: FDA-Public Use
  Company Number: 2005167453

PATIENT
  Age: 65 Year
  Sex: Male

DRUGS (2)
  1. LYRICA [Suspect]
     Indication: DIABETIC NEUROPATHY
     Dosage: 50 MG (50 MG ONCE)
  2. NEURONTIN [Concomitant]

REACTIONS (1)
  - CONDITION AGGRAVATED [None]
